FAERS Safety Report 6373044-0 (Version None)
Quarter: 2009Q3

REPORT INFORMATION
  Report Type: 
  Country: None (occurrence: None)
  Receive Date: 20090924
  Receipt Date: 20090722
  Transmission Date: 20100115
  Serious: No
  Sender: FDA-Public Use
  Company Number: US-ASTRAZENECA-2009SE05820

PATIENT
  Sex: Male

DRUGS (10)
  1. SEROQUEL XR [Suspect]
     Route: 048
  2. WELLBUTRIN [Concomitant]
  3. METHYLPHENIDATE HCL [Concomitant]
  4. IMIPRAMINE [Concomitant]
  5. PROTONIX [Concomitant]
  6. MVT [Concomitant]
  7. LEVOXYL [Concomitant]
  8. PRAVASTATIN [Concomitant]
  9. ASPIRIN [Concomitant]
  10. BENZODIAZEPINES [Concomitant]

REACTIONS (5)
  - DECREASED APPETITE [None]
  - DYSPHORIA [None]
  - INSOMNIA [None]
  - VISUAL IMPAIRMENT [None]
  - WEIGHT DECREASED [None]
